FAERS Safety Report 21867289 (Version 1)
Quarter: 2023Q1

REPORT INFORMATION
  Report Type: Spontaneous
  Country: FR (occurrence: None)
  Receive Date: 20230116
  Receipt Date: 20230116
  Transmission Date: 20230417
  Serious: Yes (Other)
  Sender: FDA-Public Use
  Company Number: FR-US-Provell Pharmaceuticals LLC-9376996

PATIENT
  Age: 58 Year
  Sex: Male
  Weight: 75 kg

DRUGS (8)
  1. LEVOTHYROXINE [Suspect]
     Active Substance: LEVOTHYROXINE
     Indication: Post procedural hypothyroidism
     Dates: start: 202009
  2. LEVOTHYROXINE [Suspect]
     Active Substance: LEVOTHYROXINE
     Indication: Congenital hypothyroidism
  3. LYSODREN [Concomitant]
     Active Substance: MITOTANE
     Indication: Adrenal gland cancer
     Dosage: 8 TABLETS
     Dates: start: 202009
  4. LYSODREN [Concomitant]
     Active Substance: MITOTANE
     Dosage: 7 TABLETS
  5. LYSODREN [Concomitant]
     Active Substance: MITOTANE
     Dosage: 6 TABLETS
  6. LYSODREN [Concomitant]
     Active Substance: MITOTANE
     Dosage: 4 TABLET
  7. LYSODREN [Concomitant]
     Active Substance: MITOTANE
     Dosage: 5 TABLETS
  8. COVERAM [Concomitant]
     Active Substance: AMLODIPINE\PERINDOPRIL
     Indication: Hypertension

REACTIONS (7)
  - Metastases to peritoneum [Unknown]
  - Pulmonary embolism [Unknown]
  - Subclavian vein thrombosis [Unknown]
  - Metastases to liver [Recovered/Resolved]
  - Hepatic lesion [Recovered/Resolved]
  - Metastases to lung [Unknown]
  - Nausea [Not Recovered/Not Resolved]

NARRATIVE: CASE EVENT DATE: 20210701
